FAERS Safety Report 6915650-8 (Version None)
Quarter: 2010Q3

REPORT INFORMATION
  Report Type: 
  Country: None (occurrence: None)
  Receive Date: 20100810
  Receipt Date: 20100803
  Transmission Date: 20110219
  Serious: Yes (Disabling)
  Sender: FDA-Public Use
  Company Number: FR-KINGPHARMUSA00001-K201000974

PATIENT
  Age: 49 Year
  Sex: Male

DRUGS (1)
  1. ALTACE [Suspect]
     Dosage: UNK
     Route: 048

REACTIONS (3)
  - GAIT DISTURBANCE [None]
  - HYPOAESTHESIA [None]
  - PERONEAL NERVE PALSY [None]
